FAERS Safety Report 7983591-3 (Version None)
Quarter: 2011Q4

REPORT INFORMATION
  Report Type: 
  Country: None (occurrence: None)
  Receive Date: 20111215
  Receipt Date: 20111209
  Transmission Date: 20120403
  Serious: Yes (Other)
  Sender: FDA-Public Use
  Company Number: PHEH2011US011293

PATIENT
  Sex: Female

DRUGS (4)
  1. RECLAST [Suspect]
     Route: 042
     Dates: start: 20110201
  2. RECLAST [Suspect]
     Route: 042
     Dates: start: 20100201
  3. FOSAMAX [Suspect]
     Dosage: UNK
     Dates: start: 20040101, end: 20100101
  4. BONIVA [Suspect]
     Dosage: UNK
     Dates: start: 20040101, end: 20100101

REACTIONS (1)
  - OSTEONECROSIS OF JAW [None]
